FAERS Safety Report 5823332-9 (Version None)
Quarter: 2008Q3

REPORT INFORMATION
  Report Type: 
  Country: None (occurrence: None)
  Receive Date: 20080725
  Receipt Date: 20070614
  Transmission Date: 20090109
  Serious: No
  Sender: FDA-Public Use
  Company Number: US-AMGEN-KDL209399

PATIENT
  Sex: Female

DRUGS (9)
  1. EPOGEN [Suspect]
     Indication: RENAL FAILURE CHRONIC
     Route: 042
     Dates: start: 20060501
  2. PROCRIT [Suspect]
     Indication: RENAL FAILURE CHRONIC
     Route: 058
     Dates: start: 20051001, end: 20060801
  3. LABETALOL HCL [Concomitant]
  4. CLONIDINE [Concomitant]
  5. LASIX [Concomitant]
  6. ASPIRIN [Concomitant]
  7. LIPITOR [Concomitant]
  8. SYNTHROID [Concomitant]
  9. AMBIEN [Concomitant]

REACTIONS (5)
  - DRUG HYPERSENSITIVITY [None]
  - PRURITUS [None]
  - RASH [None]
  - RASH ERYTHEMATOUS [None]
  - RASH GENERALISED [None]
